FAERS Safety Report 8485976-8 (Version None)
Quarter: 2012Q2

REPORT INFORMATION
  Report Type: 
  Country: None (occurrence: None)
  Receive Date: 20120626
  Receipt Date: 20120615
  Transmission Date: 20120825
  Serious: Yes (Other)
  Sender: FDA-Public Use
  Company Number: 2012MA007061

PATIENT
  Age: 75 Year
  Sex: Male

DRUGS (11)
  1. DOXYCYCLINE HYCLATE [Suspect]
     Dates: start: 20120516
  2. SALMETEROL [Concomitant]
  3. SALMETEROL [Concomitant]
  4. PREDNISOLONE [Concomitant]
  5. TIOTROPIUM BROMIDE [Concomitant]
  6. VENTOLIN [Concomitant]
  7. FERROUS FUMARATE [Concomitant]
  8. BECLOMETHASONE DIPROPIONATE [Concomitant]
  9. ZOLADEX [Concomitant]
  10. OMEPRAZOLE [Concomitant]
  11. TAMSULOSIN HCL [Concomitant]

REACTIONS (3)
  - SOLAR DERMATITIS [None]
  - RASH [None]
  - PARAESTHESIA [None]
